FAERS Safety Report 9731523 (Version 3)
Quarter: 2015Q3

REPORT INFORMATION
  Report Type: Spontaneous
  Country: US (occurrence: US)
  Receive Date: 20131203
  Receipt Date: 20150731
  Transmission Date: 20151125
  Serious: No
  Sender: FDA-Public Use
  Company Number: US-GILEAD-2008-0016203

PATIENT
  Age: 51 Year
  Sex: Male
  Weight: 72.57 kg

DRUGS (8)
  1. VIREAD [Suspect]
     Active Substance: TENOFOVIR DISOPROXIL FUMARATE
     Indication: HIV INFECTION
  2. IGG [Concomitant]
     Active Substance: HUMAN IMMUNOGLOBULIN G
     Dosage: (MONTHLY)
  3. SEROSTIM [Concomitant]
     Active Substance: SOMATROPIN
     Dosage: (3 MG EVERY OTHER DAY)
     Route: 058
  4. COZAAR [Concomitant]
     Active Substance: LOSARTAN POTASSIUM
  5. QUERCETIN [Concomitant]
     Active Substance: QUERCETIN
  6. COQ10 [Concomitant]
     Active Substance: UBIDECARENONE
  7. RESCRIPTOR [Concomitant]
     Active Substance: DELAVIRDINE MESYLATE
  8. TESTOSTERONE. [Concomitant]
     Active Substance: TESTOSTERONE

REACTIONS (1)
  - Bone density decreased [None]
